FAERS Safety Report 4762500-4 (Version None)
Quarter: 2005Q3

REPORT INFORMATION
  Report Type: 
  Country: None (occurrence: None)
  Receive Date: 20050907
  Receipt Date: 20050414
  Transmission Date: 20060218
  Serious: Yes (Disabling)
  Sender: FDA-Public Use
  Company Number: 200511326FR

PATIENT
  Age: 33 Year
  Sex: Female

DRUGS (2)
  1. KETEK [Suspect]
     Indication: ACUTE SINUSITIS
     Route: 048
     Dates: start: 20050116, end: 20050117
  2. NUVARING [Concomitant]
     Indication: CONTRACEPTION

REACTIONS (2)
  - BINOCULAR EYE MOVEMENT DISORDER [None]
  - DIPLOPIA [None]
